FAERS Safety Report 6797349-4 (Version None)
Quarter: 2010Q2

REPORT INFORMATION
  Report Type: 
  Country: None (occurrence: None)
  Receive Date: 20100623
  Receipt Date: 20100609
  Transmission Date: 20101027
  Serious: Yes (Other)
  Sender: FDA-Public Use
  Company Number: CR10-0209

PATIENT
  Age: 41 Year
  Sex: Female

DRUGS (1)
  1. PRIMATENE MIST [Suspect]
     Indication: ASTHMA
     Dosage: PREVIOUS USER
     Dates: start: 20100517

REACTIONS (8)
  - ASTHMA [None]
  - CONDITION AGGRAVATED [None]
  - NAUSEA [None]
  - PYREXIA [None]
  - RESTLESSNESS [None]
  - RHINITIS ALLERGIC [None]
  - SPUTUM DISCOLOURED [None]
  - VOMITING [None]
